FAERS Safety Report 9553710 (Version 1)
Quarter: 2013Q3

REPORT INFORMATION
  Report Type: Spontaneous
  Country: BR (occurrence: BR)
  Receive Date: 20130925
  Receipt Date: 20130925
  Transmission Date: 20140515
  Serious: Yes (Other)
  Sender: FDA-Public Use
  Company Number: BR-JNJFOC-20130911456

PATIENT
  Sex: Female
  Weight: 61 kg

DRUGS (5)
  1. REMICADE [Suspect]
     Indication: CROHN^S DISEASE
     Route: 042
     Dates: start: 20130918
  2. REMICADE [Suspect]
     Indication: CROHN^S DISEASE
     Route: 042
     Dates: start: 20130710
  3. REMICADE [Suspect]
     Indication: CROHN^S DISEASE
     Route: 042
     Dates: start: 2012
  4. IMURAN [Concomitant]
     Indication: CROHN^S DISEASE
     Route: 065
  5. VENLIFT [Concomitant]
     Indication: DEPRESSION
     Route: 065

REACTIONS (3)
  - Colectomy [Unknown]
  - Fistula [Unknown]
  - Nasopharyngitis [Unknown]
